FAERS Safety Report 14675109 (Version 2)
Quarter: 2024Q4

REPORT INFORMATION
  Report Type: Spontaneous
  Country: CA (occurrence: CA)
  Receive Date: 20180323
  Receipt Date: 20241016
  Transmission Date: 20250114
  Serious: Yes (Life-Threatening, Hospitalization, Disabling, Other)
  Sender: BAYER HEALTHCARE PHARMACEUTICALS INC.
  Company Number: CA-BAYER-2018-051892

PATIENT
  Age: 36 Year
  Sex: Female
  Weight: 73 kg

DRUGS (1)
  1. MIRENA [Suspect]
     Active Substance: LEVONORGESTREL
     Indication: Contraception
     Dosage: 20?G/DAY
     Route: 015

REACTIONS (28)
  - Sepsis [Recovering/Resolving]
  - Abdominal pain [Not Recovered/Not Resolved]
  - Depressed mood [Not Recovered/Not Resolved]
  - Depression [Not Recovered/Not Resolved]
  - Dyspepsia [Not Recovered/Not Resolved]
  - Headache [Not Recovered/Not Resolved]
  - Hyperhidrosis [Not Recovered/Not Resolved]
  - Irritability [Not Recovered/Not Resolved]
  - Joint swelling [Not Recovered/Not Resolved]
  - Libido decreased [Not Recovered/Not Resolved]
  - Musculoskeletal pain [Recovering/Resolving]
  - Ovarian cyst [Not Recovered/Not Resolved]
  - Pain in extremity [Not Recovered/Not Resolved]
  - Peripheral swelling [Not Recovered/Not Resolved]
  - Renal pain [Not Recovered/Not Resolved]
  - Salpingo-oophorectomy unilateral [Not Recovered/Not Resolved]
  - Vaginal haemorrhage [Not Recovered/Not Resolved]
  - Vertigo [Not Recovered/Not Resolved]
  - Vision blurred [Not Recovered/Not Resolved]
  - Paraesthesia [Recovering/Resolving]
  - Sciatica [Recovering/Resolving]
  - Pyrexia [Recovering/Resolving]
  - Pelvic pain [Recovering/Resolving]
  - Vaginal odour [Recovering/Resolving]
  - Blood culture positive [Recovering/Resolving]
  - Sacroiliitis [Recovering/Resolving]
  - Pelvic inflammatory disease [Recovering/Resolving]
  - Staphylococcus test positive [Recovering/Resolving]
